FAERS Safety Report 4654866-0 (Version None)
Quarter: 2005Q2

REPORT INFORMATION
  Report Type: 
  Country: None (occurrence: None)
  Receive Date: 20050506
  Receipt Date: 20050405
  Transmission Date: 20051028
  Serious: Yes (Disabling)
  Sender: FDA-Public Use
  Company Number: US-MERCK-0504USA00593

PATIENT
  Age: 40 Year
  Sex: Female

DRUGS (3)
  1. ZOCOR [Suspect]
     Indication: HYPERCHOLESTEROLAEMIA
     Route: 048
     Dates: start: 20050211, end: 20050402
  2. TRAZODONE HYDROCHLORIDE [Concomitant]
     Route: 065
  3. MICRONOR [Concomitant]
     Route: 065

REACTIONS (3)
  - INSOMNIA [None]
  - MUSCLE TWITCHING [None]
  - MYALGIA [None]
